FAERS Safety Report 4314894-1 (Version None)
Quarter: 2004Q1

REPORT INFORMATION
  Report Type: 
  Country: None (occurrence: None)
  Receive Date: 20040310
  Receipt Date: 20040310
  Transmission Date: 20041129
  Serious: Yes (Death)
  Sender: FDA-Public Use
  Company Number: None

PATIENT
  Age: 60 Year
  Sex: Female
  Weight: 63.05 kg

DRUGS (1)
  1. TARCEVA [Suspect]
     Dosage: 150 MG QD ORAL
     Route: 048
     Dates: start: 20031103, end: 20040302

REACTIONS (7)
  - COMA [None]
  - DIARRHOEA [None]
  - DIZZINESS [None]
  - MALIGNANT NEOPLASM PROGRESSION [None]
  - METASTASES TO CENTRAL NERVOUS SYSTEM [None]
  - NAUSEA [None]
  - PAIN IN EXTREMITY [None]
